FAERS Safety Report 4989350-8 (Version None)
Quarter: 2006Q2

REPORT INFORMATION
  Report Type: 
  Country: None (occurrence: None)
  Receive Date: 20060426
  Receipt Date: 20060410
  Transmission Date: 20061013
  Serious: Yes (Life-Threatening, Hospitalization)
  Sender: FDA-Public Use
  Company Number: 2006-00870

PATIENT
  Age: 49 Year
  Sex: Male
  Weight: 64 kg

DRUGS (2)
  1. VELCADE [Suspect]
     Dosage: 3.00 MG, INTRAVENOUS
     Route: 042
     Dates: start: 20060327, end: 20060327
  2. RITUXIMAB (RITUXIMAB) SOLUTION (EXCEPT SYRUP) [Suspect]
     Dates: start: 20060327

REACTIONS (16)
  - ANAEMIA [None]
  - DISEASE PROGRESSION [None]
  - DYSPNOEA [None]
  - ESCHERICHIA SEPSIS [None]
  - GENERAL PHYSICAL HEALTH DETERIORATION [None]
  - MALIGNANT NEOPLASM PROGRESSION [None]
  - NEOPLASM PROGRESSION [None]
  - NEUTROPENIA [None]
  - OLIGURIA [None]
  - PLEURAL EFFUSION [None]
  - PNEUMONIA [None]
  - PYREXIA [None]
  - RENAL FAILURE ACUTE [None]
  - RESPIRATORY DISTRESS [None]
  - SPLENOMEGALY [None]
  - THROMBOCYTOPENIA [None]
